FAERS Safety Report 25154569 (Version 1)
Quarter: 2025Q2

REPORT INFORMATION
  Report Type: Spontaneous
  Country: US (occurrence: US)
  Receive Date: 20250403
  Receipt Date: 20250403
  Transmission Date: 20250716
  Serious: Yes (Hospitalization)
  Sender: MYLAN
  Company Number: US-MYLANLABS-2025M1027121

PATIENT
  Age: 63 Year
  Sex: Male

DRUGS (1)
  1. NOREPINEPHRINE [Suspect]
     Active Substance: NOREPINEPHRINE
     Indication: Shock

REACTIONS (3)
  - Aortic valve incompetence [Unknown]
  - Condition aggravated [Unknown]
  - Pulmonary oedema [Unknown]
